FAERS Safety Report 13227572 (Version 7)
Quarter: 2017Q3

REPORT INFORMATION
  Report Type: Spontaneous
  Country: FR (occurrence: FR)
  Receive Date: 20170213
  Receipt Date: 20170825
  Transmission Date: 20171127
  Serious: Yes (Hospitalization)
  Sender: FDA-Public Use
  Company Number: FR-PFIZER INC-2017052050

PATIENT
  Age: 64 Year
  Sex: Male

DRUGS (18)
  1. PREVISCAN [Suspect]
     Active Substance: FLUINDIONE
     Indication: THROMBOSIS PROPHYLAXIS
     Dosage: 20 MG, UNK
     Route: 048
     Dates: start: 20161229
  2. ALFUZOSINE [Suspect]
     Active Substance: ALFUZOSIN HYDROCHLORIDE
     Indication: BENIGN PROSTATIC HYPERPLASIA
     Dosage: 10 MG, DAILY
     Route: 048
     Dates: start: 20161220, end: 20161222
  3. CALCIPARINE [Suspect]
     Active Substance: HEPARIN CALCIUM
     Indication: CARDIAC FAILURE
     Dosage: UNK
     Route: 058
     Dates: start: 20161205
  4. ZOPICLONE [Suspect]
     Active Substance: ZOPICLONE
     Indication: SLEEP DISORDER
     Dosage: 7.25 MG, UNK
     Route: 048
     Dates: start: 20161207
  5. PERINDOPRIL [Suspect]
     Active Substance: PERINDOPRIL
     Indication: CARDIAC FAILURE
     Dosage: UNK
     Dates: start: 20161229
  6. ALPRAZOLAM. [Suspect]
     Active Substance: ALPRAZOLAM
     Indication: ANXIOLYTIC THERAPY
     Dosage: 0.5 MG, UNK
     Route: 048
     Dates: start: 20170106
  7. PANTOPRAZOLE [Suspect]
     Active Substance: PANTOPRAZOLE
     Indication: PROPHYLAXIS AGAINST GASTROINTESTINAL ULCER
     Dosage: 20 MG, QD
     Dates: start: 20161210
  8. AUGMENTIN [Suspect]
     Active Substance: AMOXICILLIN\CLAVULANATE POTASSIUM
     Indication: INFECTION
     Dosage: 3 G, UNK
     Route: 042
     Dates: start: 20161210, end: 20161215
  9. DIGOXINE NATIVELLE [Suspect]
     Active Substance: DIGOXIN
     Indication: CARDIAC FAILURE
     Dosage: UNK
     Route: 042
     Dates: start: 20161208, end: 20161208
  10. ROXITHROMYCINE [Suspect]
     Active Substance: ROXITHROMYCIN
     Indication: INFECTION
     Dosage: 150 MG, BID
     Route: 048
     Dates: start: 20161214, end: 20161221
  11. KARDEGIC [Suspect]
     Active Substance: ASPIRIN LYSINE
     Indication: PLATELET AGGREGATION INHIBITION
     Dosage: 75 MG, QD
     Route: 048
     Dates: start: 20161209, end: 20161229
  12. AUGMENTIN [Suspect]
     Active Substance: AMOXICILLIN\CLAVULANATE POTASSIUM
     Dosage: 3 G, DAILY
     Route: 048
     Dates: start: 20161216, end: 20161221
  13. BISOPROLOL FUMARATE. [Suspect]
     Active Substance: BISOPROLOL FUMARATE
     Indication: CARDIAC FAILURE
     Dosage: UNK
     Route: 048
     Dates: start: 20161205
  14. AMIODARONE HCL [Suspect]
     Active Substance: AMIODARONE HYDROCHLORIDE
     Indication: ARRHYTHMIA SUPRAVENTRICULAR
     Dosage: 1200 MG, UNK
     Route: 042
     Dates: start: 20161205, end: 20161206
  15. RAMIPRIL. [Suspect]
     Active Substance: RAMIPRIL
     Indication: CARDIAC FAILURE
     Dosage: 1.25 MG, QD
     Route: 048
     Dates: start: 20161208, end: 20161223
  16. FUROSEMIDE. [Suspect]
     Active Substance: FUROSEMIDE
     Indication: CARDIAC FAILURE
     Dosage: UNK
     Route: 048
     Dates: start: 20161207, end: 20170103
  17. DIGOXIN. [Suspect]
     Active Substance: DIGOXIN
     Indication: CARDIAC FAILURE
     Dosage: 0.25 MG, UNK
     Route: 048
     Dates: start: 20161209, end: 20161220
  18. SEROPLEX [Concomitant]
     Active Substance: ESCITALOPRAM OXALATE
     Dosage: UNK

REACTIONS (3)
  - Jaundice [Recovered/Resolved]
  - Hepatitis [Recovered/Resolved]
  - Cholestasis [Recovered/Resolved]

NARRATIVE: CASE EVENT DATE: 20170112
